FAERS Safety Report 25852525 (Version 1)
Quarter: 2025Q3

REPORT INFORMATION
  Report Type: Spontaneous
  Country: EU (occurrence: EU)
  Receive Date: 20250926
  Receipt Date: 20250926
  Transmission Date: 20251020
  Serious: Yes (Hospitalization, Other)
  Sender: AUROBINDO
  Company Number: EU-ASPEN-GLO2025NL007787

PATIENT
  Age: 66 Year
  Sex: Male

DRUGS (19)
  1. METOPROLOL [Suspect]
     Active Substance: METOPROLOL
     Indication: Atrial fibrillation
     Dosage: 200 MILLIGRAM, ONCE A DAY (200 MILLIGRAM, QD)
     Route: 065
  2. METOPROLOL [Suspect]
     Active Substance: METOPROLOL
     Indication: Cardiac failure
  3. FUROSEMIDE [Suspect]
     Active Substance: FUROSEMIDE
     Indication: Atrial fibrillation
     Dosage: 80 MILLIGRAM, ONCE A DAY (80 MILLIGRAM, QD)
     Route: 065
  4. FUROSEMIDE [Suspect]
     Active Substance: FUROSEMIDE
     Indication: Cardiac failure
  5. SPIRONOLACTONE [Suspect]
     Active Substance: SPIRONOLACTONE
     Indication: Atrial fibrillation
     Dosage: 25 MILLIGRAM, ONCE A DAY (25 MILLIGRAM, QD)
     Route: 065
  6. SPIRONOLACTONE [Suspect]
     Active Substance: SPIRONOLACTONE
     Indication: Cardiac failure
  7. PANTOPRAZOLE [Suspect]
     Active Substance: PANTOPRAZOLE
     Indication: Atrial fibrillation
     Dosage: 40 MILLIGRAM, ONCE A DAY (40 MILLIGRAM, QD)
     Route: 065
  8. PANTOPRAZOLE [Suspect]
     Active Substance: PANTOPRAZOLE
     Indication: Cardiac failure
  9. AMLODIPINE [Suspect]
     Active Substance: AMLODIPINE BESYLATE
     Indication: Atrial fibrillation
     Dosage: 10 MILLIGRAM, ONCE A DAY (10 MILLIGRAM, QD)
     Route: 065
  10. AMLODIPINE [Suspect]
     Active Substance: AMLODIPINE BESYLATE
     Indication: Cardiac failure
  11. LISINOPRIL [Suspect]
     Active Substance: LISINOPRIL
     Indication: Atrial fibrillation
     Dosage: 20 MILLIGRAM, ONCE A DAY (10 MILLIGRAM, BID)
     Route: 065
  12. LISINOPRIL [Suspect]
     Active Substance: LISINOPRIL
     Indication: Cardiac failure
  13. APIXABAN [Suspect]
     Active Substance: APIXABAN
     Indication: Atrial fibrillation
     Dosage: 10 MILLIGRAM, TWO TIMES A DAY (5 MILLIGRAM, BID)
     Route: 065
  14. APIXABAN [Suspect]
     Active Substance: APIXABAN
     Indication: Cardiac failure
  15. EMPAGLIFLOZIN [Suspect]
     Active Substance: EMPAGLIFLOZIN
     Indication: Atrial fibrillation
     Dosage: 10 MILLIGRAM, ONCE A DAY (10 MILLIGRAM, QD)
     Route: 065
  16. EMPAGLIFLOZIN [Suspect]
     Active Substance: EMPAGLIFLOZIN
     Indication: Cardiac failure
  17. DIGOXIN [Suspect]
     Active Substance: DIGOXIN
     Indication: Atrial fibrillation
     Dosage: 0.25 MILLIGRAM, ONCE A DAY (0.25 MILLIGRAM, QD)
     Route: 065
  18. DIGOXIN [Suspect]
     Active Substance: DIGOXIN
     Indication: Cardiac failure
     Route: 065
  19. DIGOXIN [Suspect]
     Active Substance: DIGOXIN
     Route: 065

REACTIONS (4)
  - Atrioventricular block complete [Unknown]
  - Cardiogenic shock [Unknown]
  - Hyperkalaemia [Unknown]
  - Toxicity to various agents [Unknown]
